FAERS Safety Report 8795647 (Version 1)
Quarter: 2012Q4

REPORT INFORMATION
  Report Type: 
  Country: US (occurrence: US)
  Receive Date: 20120919
  Receipt Date: 20120919
  Transmission Date: 20130627
  Serious: No
  Sender: FDA-Public Use
  Company Number: US-ASTRAZENECA-2012SE19150

PATIENT
  Age: 66 Year
  Sex: Female

DRUGS (6)
  1. NEXIUM [Suspect]
     Route: 048
  2. BUSPAR [Concomitant]
  3. CYMBALTA [Concomitant]
  4. METOPROLOL [Concomitant]
  5. NEURONTIN [Concomitant]
  6. TRILIPIX [Concomitant]

REACTIONS (8)
  - Gastritis [Unknown]
  - Dyspepsia [Unknown]
  - Arthritis [Unknown]
  - Headache [Unknown]
  - Depression [Unknown]
  - Cardiac disorder [Unknown]
  - Gait disturbance [Unknown]
  - Intentional drug misuse [Unknown]
